FAERS Safety Report 4868788-3 (Version None)
Quarter: 2005Q4

REPORT INFORMATION
  Report Type: 
  Country: None (occurrence: None)
  Receive Date: 20051223
  Receipt Date: 20051212
  Transmission Date: 20060501
  Serious: Yes (Hospitalization)
  Sender: FDA-Public Use
  Company Number: 2005123653

PATIENT
  Age: 75 Year
  Sex: Male
  Weight: 90 kg

DRUGS (3)
  1. FLUCONAZOLE [Suspect]
     Indication: ILL-DEFINED DISORDER
     Dosage: 1200 MG (400 MG, 3 IN 1 D), INTRAVENOUS
     Route: 042
     Dates: start: 20050803, end: 20050813
  2. RIFADIN [Suspect]
     Indication: ILL-DEFINED DISORDER
     Dosage: 1200 MG (600 MG, 2 IN 1 D), INTRAVENOUS
     Route: 042
     Dates: start: 20050727, end: 20050810
  3. VANCOMYCIN HCL [Suspect]
     Indication: ILL-DEFINED DISORDER
     Dosage: 2 GRAM (1 GRAM, 2 IN 1 D, INTRAVENOUS
     Route: 042
     Dates: start: 20050727, end: 20050817

REACTIONS (9)
  - CANDIDIASIS [None]
  - EOSINOPHILIA [None]
  - LYMPHADENOPATHY [None]
  - MEDIASTINITIS [None]
  - PRURITUS [None]
  - PYREXIA [None]
  - RASH MACULAR [None]
  - STAPHYLOCOCCAL INFECTION [None]
  - TOXIC SKIN ERUPTION [None]
